FAERS Safety Report 6183956-9 (Version None)
Quarter: 2009Q2

REPORT INFORMATION
  Report Type: 
  Country: None (occurrence: None)
  Receive Date: 20090508
  Receipt Date: 20090507
  Transmission Date: 20091009
  Serious: No
  Sender: FDA-Public Use
  Company Number: US-B.I. PHARMACEUTICALS,INC./RIDGEFIELD-2009-BP-04579BP

PATIENT
  Sex: Male
  Weight: 84.82 kg

DRUGS (11)
  1. SPIRIVA [Suspect]
     Indication: CHRONIC OBSTRUCTIVE PULMONARY DISEASE
     Dosage: 36MCG
     Route: 055
     Dates: end: 20080301
  2. SPIRIVA [Suspect]
     Indication: DYSPNOEA
  3. ADVAIR DISKUS 100/50 [Concomitant]
     Indication: CHRONIC OBSTRUCTIVE PULMONARY DISEASE
  4. RANITIDINE [Concomitant]
  5. DIOVAN [Concomitant]
  6. ATENOLOL [Concomitant]
  7. LASIX [Concomitant]
  8. POTASSIUM CL [Concomitant]
  9. PRAVASTATIN [Concomitant]
  10. WARFARIN SODIUM [Concomitant]
  11. ALBUTEROL SULFATE [Concomitant]

REACTIONS (2)
  - STOMATITIS [None]
  - SWOLLEN TONGUE [None]
